FAERS Safety Report 5376619-0 (Version None)
Quarter: 2007Q2

REPORT INFORMATION
  Report Type: 
  Country: None (occurrence: None)
  Receive Date: 20070628
  Receipt Date: 20070620
  Transmission Date: 20071010
  Serious: Yes (Other)
  Sender: FDA-Public Use
  Company Number: CHNY2007PT02277

PATIENT
  Age: 36 Year
  Sex: Female

DRUGS (1)
  1. LAMISIL [Suspect]
     Indication: TINEA PEDIS
     Dosage: TOPICAL
     Route: 061
     Dates: start: 20070511

REACTIONS (5)
  - DRY SKIN [None]
  - GENITAL DISCHARGE [None]
  - SKIN EXFOLIATION [None]
  - VAGINAL CANDIDIASIS [None]
  - VULVOVAGINAL PRURITUS [None]
